FAERS Safety Report 22845387 (Version 5)
Quarter: 2024Q1

REPORT INFORMATION
  Report Type: Spontaneous
  Country: PL (occurrence: PL)
  Receive Date: 20230821
  Receipt Date: 20240119
  Transmission Date: 20240410
  Serious: Yes (Hospitalization, Other)
  Sender: FDA-Public Use
  Company Number: PL-POLFAT-144-2023

PATIENT
  Age: 57 Year
  Sex: Female

DRUGS (3)
  1. IBUPROFEN [Suspect]
     Active Substance: IBUPROFEN
     Indication: Spinal pain
     Dosage: 400 MILLIGRAM, QD (400 MG, CHRONICALLY)
     Route: 065
  2. IBUPROFEN [Suspect]
     Active Substance: IBUPROFEN
     Indication: Pain
  3. IBUPROFEN [Suspect]
     Active Substance: IBUPROFEN
     Indication: Back pain

REACTIONS (6)
  - Pain [Recovered/Resolved]
  - Leukocyturia [Unknown]
  - Leukocytosis [Unknown]
  - Blood creatinine increased [Unknown]
  - Tubulointerstitial nephritis [Recovered/Resolved]
  - Incorrect product administration duration [Unknown]
